FAERS Safety Report 8478082 (Version 6)
Quarter: 2013Q2

REPORT INFORMATION
  Report Type: Spontaneous
  Country: BR (occurrence: BR)
  Receive Date: 20120327
  Receipt Date: 20130426
  Transmission Date: 20140414
  Serious: Yes (Other)
  Sender: FDA-Public Use
  Company Number: BR-AMGEN-BRASP2012017841

PATIENT
  Age: 60 Year
  Sex: Female
  Weight: 78 kg

DRUGS (12)
  1. ENBREL [Suspect]
     Indication: RHEUMATOID ARTHRITIS
     Dosage: 50 MG, ONCE WEEKLY
     Route: 058
     Dates: start: 200909, end: 20120718
  2. ENBREL [Suspect]
     Dosage: 50 MG, QWK
     Dates: start: 201212
  3. REMICADE [Suspect]
     Dosage: UNK
  4. PREDNISONE [Suspect]
     Indication: RHEUMATOID ARTHRITIS
     Dosage: 10 MG, QD
     Dates: start: 1993
  5. PREDNISONE [Suspect]
     Dosage: 40 MG, UNK
  6. PREDNISONE [Suspect]
     Dosage: 20 MG, QD
  7. PURAN T4 [Concomitant]
     Indication: HYPOTHYROIDISM
     Dosage: 100 UG, 1X/DAY
     Dates: start: 1993
  8. ALPRAZOLAM [Concomitant]
     Indication: RELAXATION THERAPY
     Dosage: 5 MG, 1X/DAY
  9. LOSARTAN [Concomitant]
     Dosage: 50 MG, 1X/DAY
  10. METHOTREXATE [Concomitant]
     Indication: RHEUMATOID ARTHRITIS
     Dosage: 5 MG, WEEKLY
  11. AMLODIPINE [Concomitant]
     Indication: HYPERTENSION
     Dosage: 5 MG, QD
  12. SERETIDE [Concomitant]
     Indication: ASTHMA
     Dosage: UNK
     Dates: start: 201204

REACTIONS (11)
  - Dengue fever [Recovering/Resolving]
  - Back pain [Not Recovered/Not Resolved]
  - Pain [Not Recovered/Not Resolved]
  - Alopecia [Not Recovered/Not Resolved]
  - Asthma [Not Recovered/Not Resolved]
  - Urinary tract infection [Recovering/Resolving]
  - Herpes zoster [Recovering/Resolving]
  - Influenza [Not Recovered/Not Resolved]
  - Nasopharyngitis [Not Recovered/Not Resolved]
  - Chest pain [Not Recovered/Not Resolved]
  - Infection [Unknown]
